FAERS Safety Report 14961123 (Version 3)
Quarter: 2018Q3

REPORT INFORMATION
  Report Type: Report from Study
  Country: DE (occurrence: DE)
  Receive Date: 20180601
  Receipt Date: 20180816
  Transmission Date: 20181010
  Serious: Yes (Hospitalization, Other)
  Sender: FDA-Public Use
  Company Number: DE-TEVA-2018-DE-898111

PATIENT
  Age: 66 Year
  Sex: Male
  Weight: 88 kg

DRUGS (8)
  1. DICLOFENAC [Suspect]
     Active Substance: DICLOFENAC
     Route: 048
  2. BISOPROLOL [Concomitant]
     Active Substance: BISOPROLOL
     Indication: PRODUCT USED FOR UNKNOWN INDICATION
     Dosage: 10 MILLIGRAM DAILY;
     Route: 048
     Dates: start: 20170901
  3. ALDACTONE [Concomitant]
     Active Substance: SPIRONOLACTONE
     Indication: PRODUCT USED FOR UNKNOWN INDICATION
     Dosage: UNK
     Route: 048
     Dates: start: 20170901
  4. TOREM [Concomitant]
     Active Substance: TORSEMIDE
     Indication: PRODUCT USED FOR UNKNOWN INDICATION
     Dosage: 10 MILLIGRAM DAILY;
     Route: 048
     Dates: start: 20170901
  5. DICLOFENAC [Suspect]
     Active Substance: DICLOFENAC
     Indication: PAIN
     Dosage: 150 MILLIGRAM DAILY;
     Route: 048
     Dates: start: 2003, end: 201712
  6. RAMIPRIL. [Concomitant]
     Active Substance: RAMIPRIL
     Indication: PRODUCT USED FOR UNKNOWN INDICATION
     Dosage: 5 MILLIGRAM DAILY;
     Route: 048
     Dates: start: 20170501
  7. DICLOFENAC [Suspect]
     Active Substance: DICLOFENAC
     Indication: CARDIAC FAILURE CHRONIC
     Route: 048
     Dates: start: 19970101, end: 201712
  8. SIMVASTATIN. [Concomitant]
     Active Substance: SIMVASTATIN
     Indication: BLOOD CHOLESTEROL INCREASED
     Dosage: 20 MILLIGRAM DAILY;
     Route: 048
     Dates: start: 20160101

REACTIONS (21)
  - Atrial flutter [Unknown]
  - Renal impairment [Recovering/Resolving]
  - Orthopnoea [Unknown]
  - Heart rate increased [Unknown]
  - Cerebrovascular accident [Unknown]
  - Asthenia [Unknown]
  - Fear of death [Unknown]
  - Mobility decreased [Unknown]
  - Blood cholesterol increased [Unknown]
  - Pericardial effusion [Unknown]
  - Weight decreased [Unknown]
  - Skin burning sensation [Unknown]
  - Dyspnoea [Unknown]
  - Pain in extremity [Unknown]
  - Cardiac failure chronic [Unknown]
  - Atrial fibrillation [Unknown]
  - Motor dysfunction [Unknown]
  - Decreased appetite [Unknown]
  - Type 2 diabetes mellitus [Unknown]
  - Nocturnal dyspnoea [Unknown]
  - Intervertebral disc protrusion [Unknown]

NARRATIVE: CASE EVENT DATE: 1997
